FAERS Safety Report 21327478 (Version 1)
Quarter: 2022Q3

REPORT INFORMATION
  Report Type: Spontaneous
  Country: IT (occurrence: IT)
  Receive Date: 20220913
  Receipt Date: 20220913
  Transmission Date: 20221027
  Serious: Yes (Hospitalization)
  Sender: FDA-Public Use
  Company Number: None

PATIENT
  Age: 94 Year
  Sex: Female

DRUGS (1)
  1. CEFTRIAXONE [Suspect]
     Active Substance: CEFTRIAXONE
     Indication: Rectal haemorrhage
     Dosage: 2 G (INTRAPRESA VENTILAZIONE, TERAPIA CORTISONICA E ANTISTAMINICO)
     Route: 042
     Dates: start: 20220904, end: 20220904

REACTIONS (3)
  - Hypotension [Recovering/Resolving]
  - Respiratory arrest [Recovering/Resolving]
  - Anaphylactic shock [Recovering/Resolving]

NARRATIVE: CASE EVENT DATE: 20220904
